FAERS Safety Report 9867557 (Version 1)
Quarter: 2014Q1

REPORT INFORMATION
  Report Type: Spontaneous
  Country: US (occurrence: US)
  Receive Date: 20140204
  Receipt Date: 20140204
  Transmission Date: 20141002
  Serious: No
  Sender: FDA-Public Use
  Company Number: US-BAYER-2014-017808

PATIENT
  Age: 75 Year
  Sex: Male
  Weight: 89.8 kg

DRUGS (1)
  1. ALEVE TABLET [Suspect]
     Dosage: 1 OR 2 DF, QD
     Route: 048
     Dates: start: 2012

REACTIONS (2)
  - Dyspepsia [Recovered/Resolved]
  - Incorrect drug administration duration [None]
